FAERS Safety Report 5346261-6 (Version None)
Quarter: 2007Q2

REPORT INFORMATION
  Report Type: 
  Country: None (occurrence: None)
  Receive Date: 20070420
  Receipt Date: 20060512
  Transmission Date: 20071010
  Serious: Yes (Hospitalization)
  Sender: FDA-Public Use
  Company Number: 06P-163-0333028-00

PATIENT
  Age: 35 Year
  Sex: Female
  Weight: 65.318 kg

DRUGS (10)
  1. DEPAKOTE [Suspect]
     Indication: AFFECTIVE DISORDER
     Dosage: SEE IMAGE
     Dates: end: 20041201
  2. DEPAKOTE [Suspect]
     Indication: CONVULSION
     Dosage: SEE IMAGE
     Dates: end: 20041201
  3. DEPAKOTE [Suspect]
     Indication: AFFECTIVE DISORDER
     Dosage: SEE IMAGE
     Dates: start: 20041201, end: 20050426
  4. DEPAKOTE [Suspect]
     Indication: CONVULSION
     Dosage: SEE IMAGE
     Dates: start: 20041201, end: 20050426
  5. DEPAKOTE [Suspect]
     Indication: AFFECTIVE DISORDER
     Dosage: SEE IMAGE
     Dates: start: 20050426
  6. DEPAKOTE [Suspect]
     Indication: CONVULSION
     Dosage: SEE IMAGE
     Dates: start: 20050426
  7. QUETIAPINE [Concomitant]
  8. LORAZEPAM [Concomitant]
  9. CALCIUM CHLORIDE [Concomitant]
  10. ZONEGRAN [Concomitant]

REACTIONS (3)
  - AMMONIA INCREASED [None]
  - NEUROLOGICAL SYMPTOM [None]
  - URINE ANALYSIS ABNORMAL [None]
